FAERS Safety Report 10272911 (Version 2)
Quarter: 2014Q3

REPORT INFORMATION
  Report Type: Spontaneous
  Country: SE (occurrence: SE)
  Receive Date: 20140702
  Receipt Date: 20140702
  Transmission Date: 20150326
  Serious: Yes (Other)
  Sender: FDA-Public Use
  Company Number: PHHY2014SE033555

PATIENT
  Age: 60 Year
  Sex: Female

DRUGS (4)
  1. GILENYA [Suspect]
     Active Substance: FINGOLIMOD HYDROCHLORIDE
     Indication: MULTIPLE SCLEROSIS
     Dosage: 0.5 MG, QD
     Route: 048
     Dates: start: 201309
  2. VESICARE [Concomitant]
     Active Substance: SOLIFENACIN SUCCINATE
     Indication: INCONTINENCE
     Dosage: 5 MG, QD
     Dates: start: 201312
  3. PROPAVAN [Concomitant]
     Active Substance: PROPIOMAZINE
     Indication: INSOMNIA
     Dosage: 25 MG, PRN
     Dates: start: 201404
  4. OMEPRAZOLE. [Concomitant]
     Active Substance: OMEPRAZOLE
     Indication: GASTROOESOPHAGEAL REFLUX DISEASE
     Dosage: 20 MG, BID

REACTIONS (1)
  - Chest discomfort [Not Recovered/Not Resolved]

NARRATIVE: CASE EVENT DATE: 20131007
